FAERS Safety Report 8585352-3 (Version None)
Quarter: 2012Q3

REPORT INFORMATION
  Report Type: 
  Country: None (occurrence: None)
  Receive Date: 20120810
  Receipt Date: 20120808
  Transmission Date: 20120928
  Serious: Yes (Other)
  Sender: FDA-Public Use
  Company Number: US-PFIZER INC-2012194363

PATIENT
  Age: 52 Year
  Sex: Male
  Weight: 74.4 kg

DRUGS (3)
  1. CRESTOR [Concomitant]
     Indication: BLOOD CHOLESTEROL INCREASED
     Dosage: UNK
  2. NORVASC [Suspect]
     Indication: HYPERTENSION
     Dosage: 5 MG, 1X/DAY
     Route: 048
  3. ACCURETIC [Suspect]
     Indication: HYPERTENSION
     Dosage: DF= 20\12.5MG), 1X/DAY
     Route: 048

REACTIONS (4)
  - MULTIPLE FRACTURES [None]
  - CHEST PAIN [None]
  - LIGAMENT SPRAIN [None]
  - FALL [None]
